FAERS Safety Report 5186267-3 (Version None)
Quarter: 2006Q4

REPORT INFORMATION
  Report Type: 
  Country: None (occurrence: None)
  Receive Date: 20061212
  Receipt Date: 20061128
  Transmission Date: 20070319
  Serious: Yes (Hospitalization, Other)
  Sender: FDA-Public Use
  Company Number: 2006-151201-NL

PATIENT
  Age: 60 Year
  Sex: Male
  Weight: 91 kg

DRUGS (3)
  1. ZEMURON [Suspect]
     Indication: NEUROMUSCULAR BLOCKADE
     Dosage: 5 MG ONCE INTRAVENOUS (NOS), INDUCTION DOSE
     Dates: start: 20061117, end: 20061117
  2. ZEMURON [Suspect]
     Indication: NEUROMUSCULAR BLOCKADE
     Dosage: 45 MG ONCE INTRAVENOUS (NOS), SECOND DOSE
     Route: 042
  3. HYPERTENSION MEDICATIOM [Concomitant]

REACTIONS (2)
  - HYPOTONIA [None]
  - POST PROCEDURAL COMPLICATION [None]
